FAERS Safety Report 6671847-6 (Version None)
Quarter: 2010Q2

REPORT INFORMATION
  Report Type: 
  Country: None (occurrence: None)
  Receive Date: 20100407
  Receipt Date: 20100407
  Transmission Date: 20101027
  Serious: Yes (Hospitalization)
  Sender: FDA-Public Use
  Company Number: DE-ABBOTT-10P-062-0635210-00

PATIENT
  Sex: Female

DRUGS (13)
  1. HUMIRA [Suspect]
     Indication: DRUG USE FOR UNKNOWN INDICATION
     Dates: end: 20091001
  2. PANTOPRAZOLE SODIUM [Concomitant]
     Indication: DRUG USE FOR UNKNOWN INDICATION
  3. CITALOPRAM HYDROBROMIDE [Concomitant]
     Indication: DRUG USE FOR UNKNOWN INDICATION
  4. CALCICARE D3 [Concomitant]
     Indication: DRUG USE FOR UNKNOWN INDICATION
  5. LEVOTHYROXINE SODIUM [Concomitant]
     Indication: DRUG USE FOR UNKNOWN INDICATION
  6. BISOPROLOL5/12.5 [Concomitant]
     Indication: DRUG USE FOR UNKNOWN INDICATION
     Dosage: 1/2 TABLET PER DAY
  7. OXYGESIC [Concomitant]
     Indication: DRUG USE FOR UNKNOWN INDICATION
  8. DELIX [Concomitant]
     Indication: DRUG USE FOR UNKNOWN INDICATION
  9. SEVREDOL [Concomitant]
     Indication: DRUG USE FOR UNKNOWN INDICATION
  10. DIPYRONE TAB [Concomitant]
     Indication: DRUG USE FOR UNKNOWN INDICATION
  11. MOTILIUM [Concomitant]
     Indication: DRUG USE FOR UNKNOWN INDICATION
  12. CLINDAMYCIN HCL [Concomitant]
     Indication: DRUG USE FOR UNKNOWN INDICATION
  13. CIPRO [Concomitant]
     Indication: DRUG USE FOR UNKNOWN INDICATION

REACTIONS (1)
  - WEIGHT DECREASED [None]
